FAERS Safety Report 7076910-6 (Version None)
Quarter: 2010Q4

REPORT INFORMATION
  Report Type: 
  Country: None (occurrence: None)
  Receive Date: 20101101
  Receipt Date: 20101026
  Transmission Date: 20110411
  Serious: Yes (Other)
  Sender: FDA-Public Use
  Company Number: US-JNJCH-2010024576

PATIENT
  Age: 56 Year
  Sex: Male
  Weight: 68 kg

DRUGS (1)
  1. LISTERINE [Suspect]
     Indication: DENTURE WEARER
     Dosage: TEXT:EVERYDAY
     Route: 048

REACTIONS (3)
  - BREATH ALCOHOL TEST POSITIVE [None]
  - LOSS OF EMPLOYMENT [None]
  - WRONG TECHNIQUE IN DRUG USAGE PROCESS [None]
